FAERS Safety Report 7010295-6 (Version None)
Quarter: 2010Q3

REPORT INFORMATION
  Report Type: 
  Country: None (occurrence: None)
  Receive Date: 20100923
  Receipt Date: 20100916
  Transmission Date: 20110219
  Serious: Yes (Hospitalization)
  Sender: FDA-Public Use
  Company Number: A0882537A

PATIENT
  Age: 45 Year
  Sex: Female

DRUGS (12)
  1. TOPOTECAN [Suspect]
     Indication: ENDOMETRIAL CANCER
     Route: 042
     Dates: start: 20080414, end: 20080509
  2. COUMADIN [Suspect]
     Indication: COAGULOPATHY
     Route: 048
     Dates: end: 20080424
  3. INVESTIGATIONAL DRUG [Suspect]
     Indication: ENDOMETRIAL CANCER
     Dosage: 200MG PER DAY
     Route: 048
     Dates: start: 20080415, end: 20080526
  4. COLACE [Concomitant]
     Route: 048
  5. DILAUDID [Concomitant]
     Route: 048
  6. DURAGESIC-100 [Concomitant]
     Route: 061
  7. LASIX [Concomitant]
     Dosage: 20MG PER DAY
  8. MIRALAX [Concomitant]
     Dosage: 1UNIT PER DAY
     Route: 048
  9. PHENERGAN [Concomitant]
     Dosage: 25MG AS REQUIRED
     Route: 048
  10. PERCOCET [Concomitant]
     Route: 048
  11. TYLENOL [Concomitant]
     Route: 048
  12. PEPCID [Concomitant]
     Dosage: 20MG AS REQUIRED
     Route: 048

REACTIONS (7)
  - ANAEMIA [None]
  - EPISTAXIS [None]
  - INTERNATIONAL NORMALISED RATIO INCREASED [None]
  - NEUTROPENIA [None]
  - PANCYTOPENIA [None]
  - THROMBOCYTOPENIA [None]
  - VAGINAL HAEMORRHAGE [None]
